FAERS Safety Report 10080647 (Version 3)
Quarter: 2014Q2

REPORT INFORMATION
  Report Type: Spontaneous
  Country: JP (occurrence: JP)
  Receive Date: 20140416
  Receipt Date: 20140505
  Transmission Date: 20141212
  Serious: Yes (Hospitalization, Other)
  Sender: FDA-Public Use
  Company Number: JP-009507513-1404JPN008379

PATIENT
  Age: 74 Year
  Sex: Male

DRUGS (6)
  1. JANUVIA TABLETS 50MG [Suspect]
     Indication: DIABETES MELLITUS
     Dosage: 50 MG, QD
     Route: 048
     Dates: start: 20140311, end: 20140328
  2. GLIMICRON [Suspect]
     Dosage: DAILY DOSE UNKNOWN
     Route: 048
  3. PARKIN [Suspect]
     Dosage: DAILY DOSE UNKNOWN
     Route: 048
  4. CONTOMIN [Suspect]
     Dosage: DAILY DOSE UNKNOWN
     Route: 048
  5. SERENACE [Suspect]
     Dosage: DAILY DOSE UNKNOWN
     Route: 048
  6. PERPHENAZINE [Suspect]
     Dosage: DAILY DOSE UNKNOWN
     Route: 048

REACTIONS (2)
  - Rhabdomyolysis [Recovering/Resolving]
  - Disease complication [None]
